FAERS Safety Report 9656271 (Version 1)
Quarter: 2013Q4

REPORT INFORMATION
  Report Type: Spontaneous
  Country: US (occurrence: US)
  Receive Date: 20131030
  Receipt Date: 20131030
  Transmission Date: 20140711
  Serious: No
  Sender: FDA-Public Use
  Company Number: US-009507513-1310USA013805

PATIENT
  Age: 56 Year
  Sex: Male

DRUGS (12)
  1. VICTRELIS [Suspect]
     Indication: HEPATITIS C
     Dosage: 4 CAPSULES OF 200 MG EVERY 8 HOURS
     Route: 048
     Dates: start: 20130612
  2. RIBAVIRIN [Suspect]
     Dosage: UNKNOWN
     Route: 048
     Dates: start: 20130514
  3. PEGASYS [Suspect]
     Dosage: UNK
     Dates: start: 20130514
  4. LISINOPRIL [Concomitant]
     Dosage: UNKNOWN
  5. IBUPROFEN [Concomitant]
     Dosage: UNKNOWN
  6. ROBITUSSIN-DM [Concomitant]
     Dosage: UNKNOWN
  7. CHOLECALCIFEROL [Concomitant]
     Dosage: UNKNOWN
  8. TRAZODONE HYDROCHLORIDE [Concomitant]
     Dosage: UNKNOWN
  9. METFORMIN [Concomitant]
     Dosage: UNKNOWN
  10. GLIPIZIDE [Concomitant]
     Dosage: UNKNOWN
  11. ACARBOSE [Concomitant]
     Dosage: UNKNOWN
  12. BENZOYL PEROXIDE [Concomitant]
     Dosage: UNKNOWN

REACTIONS (2)
  - Onychoclasis [Not Recovered/Not Resolved]
  - Cheilitis [Not Recovered/Not Resolved]
